FAERS Safety Report 12719936 (Version 1)
Quarter: 2016Q3

REPORT INFORMATION
  Report Type: Spontaneous
  Country: US (occurrence: US)
  Receive Date: 20160907
  Receipt Date: 20160907
  Transmission Date: 20161109
  Serious: Yes (Hospitalization)
  Sender: FDA-Public Use
  Company Number: US-JNJFOC-20151217574

PATIENT
  Age: 86 Year
  Sex: Female
  Weight: 52.16 kg

DRUGS (2)
  1. LEVAQUIN [Suspect]
     Active Substance: LEVOFLOXACIN
     Indication: MALAISE
     Route: 048
     Dates: start: 20130104
  2. LEVAQUIN [Suspect]
     Active Substance: LEVOFLOXACIN
     Indication: MALAISE
     Route: 048
     Dates: start: 20110118, end: 20110128

REACTIONS (2)
  - Neuropathy peripheral [Unknown]
  - Hypersensitivity [Unknown]

NARRATIVE: CASE EVENT DATE: 201101
